FAERS Safety Report 4975952-1 (Version None)
Quarter: 2006Q2

REPORT INFORMATION
  Report Type: 
  Country: None (occurrence: None)
  Receive Date: 20060418
  Receipt Date: 20060412
  Transmission Date: 20061013
  Serious: Yes (Hospitalization, Other)
  Sender: FDA-Public Use
  Company Number: US-MERCK-0604USA02093

PATIENT
  Age: 76 Year
  Sex: Male
  Weight: 76 kg

DRUGS (10)
  1. VIOXX [Suspect]
     Indication: RHEUMATOID ARTHRITIS
     Route: 048
     Dates: start: 19990601, end: 20040501
  2. METOPROLOL [Concomitant]
     Route: 065
  3. FOLIC ACID [Concomitant]
     Route: 065
  4. LIPITOR [Concomitant]
     Route: 065
  5. PREVACID [Concomitant]
     Route: 065
  6. METHOTREXATE [Concomitant]
     Route: 065
  7. ACTONEL [Concomitant]
     Route: 065
  8. ASPIRIN [Concomitant]
     Route: 065
  9. DUVOID [Concomitant]
     Route: 065
  10. ALTACE [Concomitant]
     Route: 065

REACTIONS (5)
  - ADVERSE EVENT [None]
  - ATELECTASIS [None]
  - CARDIAC DISORDER [None]
  - CARDIAC PACEMAKER INSERTION [None]
  - MYOCARDIAL INFARCTION [None]
